FAERS Safety Report 16648311 (Version 2)
Quarter: 2021Q1

REPORT INFORMATION
  Report Type: Spontaneous
  Country: CN (occurrence: CN)
  Receive Date: 20190730
  Receipt Date: 20210216
  Transmission Date: 20210419
  Serious: Yes (Life-Threatening)
  Sender: FDA-Public Use
  Company Number: CN-JNJFOC-20190728274

PATIENT
  Sex: Male

DRUGS (2)
  1. REMICADE [Suspect]
     Active Substance: INFLIXIMAB
     Indication: ANKYLOSING SPONDYLITIS
     Route: 042
     Dates: start: 20181227
  2. REMICADE [Suspect]
     Active Substance: INFLIXIMAB
     Dosage: 2 SYRINGES OF INFLIXIMAB
     Route: 042
     Dates: start: 20190118

REACTIONS (1)
  - Tuberculosis [Unknown]
